FAERS Safety Report 4483541-0 (Version None)
Quarter: 2004Q4

REPORT INFORMATION
  Report Type: 
  Country: None (occurrence: None)
  Receive Date: 20041019
  Receipt Date: 20041019
  Transmission Date: 20050328
  Serious: Yes (Life-Threatening, Hospitalization)
  Sender: FDA-Public Use
  Company Number: None

PATIENT
  Age: 35 Year
  Sex: Female
  Weight: 63.5036 kg

DRUGS (1)
  1. TERBUTALINE [Suspect]
     Indication: PREMATURE LABOUR
     Dosage: BID
     Dates: start: 20020514, end: 20020816

REACTIONS (8)
  - DRUG EXPOSURE DURING PREGNANCY [None]
  - DYSPNOEA [None]
  - HEART RATE INCREASED [None]
  - MUSCLE SPASMS [None]
  - MYOCARDIAL INFARCTION [None]
  - NERVOUSNESS [None]
  - PREMATURE LABOUR [None]
  - THROMBOSIS [None]
